FAERS Safety Report 10309944 (Version 1)
Quarter: 2014Q3

REPORT INFORMATION
  Report Type: Spontaneous
  Country: US (occurrence: None)
  Receive Date: 20140715
  Receipt Date: 20140715
  Transmission Date: 20150326
  Serious: Yes (Other)
  Sender: FDA-Public Use
  Company Number: None

PATIENT
  Age: 65 Year
  Sex: Female
  Weight: 72.58 kg

DRUGS (7)
  1. FERROUS SULFATE [Concomitant]
     Active Substance: FERROUS SULFATE\FERROUS SULFATE, DRIED
  2. ALENDRONATE SODIUM. [Concomitant]
     Active Substance: ALENDRONATE SODIUM
  3. CALCIUM [Concomitant]
     Active Substance: CALCIUM
  4. NAPROXEN 375MG CAMBER PHARMACEUTICAL [Suspect]
     Active Substance: NAPROXEN
     Indication: MUSCLE TIGHTNESS
     Route: 048
     Dates: start: 20140630, end: 20140701
  5. DIAZEPAM 5MG QUALITEST PRODUCTS INC [Suspect]
     Active Substance: DIAZEPAM
     Indication: MUSCLE TIGHTNESS
     Route: 048
     Dates: start: 20140630, end: 20140701
  6. IRBESARTAN. [Concomitant]
     Active Substance: IRBESARTAN
  7. D3 [Concomitant]
     Active Substance: 25-HYDROXYCHOLECALCIFEROL, 5-TRANS-

REACTIONS (2)
  - Abdominal pain upper [None]
  - Diarrhoea [None]

NARRATIVE: CASE EVENT DATE: 20140630
